FAERS Safety Report 9067252 (Version 1)
Quarter: 2013Q1

REPORT INFORMATION
  Report Type: Report from Study
  Country: US (occurrence: US)
  Receive Date: 20130201
  Receipt Date: 20130201
  Transmission Date: 20140127
  Serious: No
  Sender: FDA-Public Use
  Company Number: US-ABBOTT-12P-163-1000886-00

PATIENT
  Age: 54 Year
  Sex: Male
  Weight: 113.5 kg

DRUGS (3)
  1. HUMIRA [Suspect]
     Indication: PSORIASIS
     Route: 058
     Dates: start: 201208
  2. ENALAPRIL [Concomitant]
     Indication: DEPRESSION
  3. AVAPRO [Concomitant]
     Indication: HYPERTENSION

REACTIONS (2)
  - Haematospermia [Not Recovered/Not Resolved]
  - Semen liquefaction abnormal [Not Recovered/Not Resolved]
